FAERS Safety Report 21060326 (Version 4)
Quarter: 2022Q3

REPORT INFORMATION
  Report Type: Spontaneous
  Country: US (occurrence: US)
  Receive Date: 20220708
  Receipt Date: 20220812
  Transmission Date: 20221027
  Serious: No
  Sender: FDA-Public Use
  Company Number: US-SANOFI-01171517

PATIENT
  Age: 20 Year
  Sex: Male

DRUGS (2)
  1. ADMELOG [Suspect]
     Active Substance: INSULIN LISPRO
     Indication: Type 1 diabetes mellitus
     Dosage: 10 ML, QID
     Route: 058
     Dates: start: 202203
  2. ADMELOG [Suspect]
     Active Substance: INSULIN LISPRO
     Dosage: UNK
     Route: 058

REACTIONS (3)
  - Poor quality product administered [Unknown]
  - Product storage error [Unknown]
  - Product contamination physical [Unknown]

NARRATIVE: CASE EVENT DATE: 20220630
